FAERS Safety Report 4624348-0 (Version None)
Quarter: 2005Q1

REPORT INFORMATION
  Report Type: 
  Country: None (occurrence: None)
  Receive Date: 20050330
  Receipt Date: 20050330
  Transmission Date: 20050727
  Serious: Yes (Other)
  Sender: FDA-Public Use
  Company Number: None

PATIENT
  Sex: Male
  Weight: 85.2762 kg

DRUGS (2)
  1. POLYETHYLENE GLYCOL [Suspect]
     Indication: CONSTIPATION
     Dosage: 1 CAPFUL QD ORALLY
     Route: 048
     Dates: start: 20050101, end: 20050201
  2. POLYETHYLENE GLYCOL [Suspect]
     Indication: QUADRIPLEGIA
     Dosage: 1 CAPFUL QD ORALLY
     Route: 048
     Dates: start: 20050101, end: 20050201

REACTIONS (6)
  - ABDOMINAL PAIN [None]
  - DIARRHOEA [None]
  - FLATULENCE [None]
  - INCONTINENCE [None]
  - PAIN [None]
  - PHARMACEUTICAL PRODUCT COMPLAINT [None]
